FAERS Safety Report 19625877 (Version 4)
Quarter: 2022Q1

REPORT INFORMATION
  Report Type: Report from Study
  Country: US (occurrence: US)
  Receive Date: 20210729
  Receipt Date: 20220206
  Transmission Date: 20220423
  Serious: No
  Sender: FDA-Public Use
  Company Number: NVSC2021US148201

PATIENT
  Sex: Male
  Weight: 68.027 kg

DRUGS (3)
  1. TREPROSTINIL [Suspect]
     Active Substance: TREPROSTINIL
     Indication: Pulmonary arterial hypertension
     Dosage: 120 UNK (NG/KG/MIN)
     Route: 042
     Dates: start: 20190813
  2. TREPROSTINIL [Suspect]
     Active Substance: TREPROSTINIL
     Dosage: UNK
     Route: 065
  3. TREPROSTINIL [Suspect]
     Active Substance: TREPROSTINIL
     Dosage: UNK
     Route: 065

REACTIONS (5)
  - Oral infection [Unknown]
  - Gingival bleeding [Unknown]
  - Gingival swelling [Unknown]
  - Complication associated with device [Unknown]
  - Underdose [Unknown]
